FAERS Safety Report 7933859-1 (Version None)
Quarter: 2011Q4

REPORT INFORMATION
  Report Type: 
  Country: None (occurrence: None)
  Receive Date: 20111122
  Receipt Date: 20111114
  Transmission Date: 20120403
  Serious: Yes (Hospitalization, Other)
  Sender: FDA-Public Use
  Company Number: US-BAYER-2011-092050

PATIENT
  Age: 24 Year
  Sex: Female

DRUGS (2)
  1. DOXYCYCLINE [Concomitant]
     Indication: ACNE
     Dosage: UNK
     Route: 048
     Dates: start: 20090701
  2. YAZ [Suspect]
     Indication: ACNE
     Dosage: UNK
     Dates: start: 20080624, end: 20090907

REACTIONS (3)
  - INJURY [None]
  - CHOLECYSTECTOMY [None]
  - CHOLELITHIASIS [None]
